FAERS Safety Report 9143065 (Version 8)
Quarter: 2013Q4

REPORT INFORMATION
  Report Type: Report from Study
  Country: JP (occurrence: JP)
  Receive Date: 20130306
  Receipt Date: 20131219
  Transmission Date: 20140711
  Serious: Yes (Hospitalization, Other)
  Sender: FDA-Public Use
  Company Number: JP-VERTEX PHARMACEUTICALS INC.-2013-003009

PATIENT
  Age: 64 Year
  Sex: Male

DRUGS (24)
  1. VX-950 (TELAPREVIR) [Suspect]
     Indication: CHRONIC HEPATITIS C
     Dosage: 2250 MG, QD
     Route: 048
     Dates: start: 20120905, end: 20121120
  2. VX-950 (TELAPREVIR) [Suspect]
     Dosage: 1500 MG, QD
     Route: 048
     Dates: start: 20121121, end: 20121127
  3. PEGINTRON [Suspect]
     Indication: CHRONIC HEPATITIS C
     Dosage: 1.5 ?G/KG, QW
     Route: 058
     Dates: start: 20120905, end: 20120925
  4. PEGINTRON [Suspect]
     Dosage: 1.3 ?G/KG, QW
     Route: 058
     Dates: start: 20121002, end: 20121016
  5. PEGINTRON [Suspect]
     Dosage: 1.2 ?G/KG, QW
     Route: 058
     Dates: start: 20121023, end: 20121120
  6. PEGINTRON [Suspect]
     Dosage: 0.8 ?G/KG, QW
     Route: 058
     Dates: start: 20121127, end: 20121127
  7. REBETOL [Suspect]
     Indication: CHRONIC HEPATITIS C
     Dosage: 800 MG, QD
     Route: 048
     Dates: start: 20120905, end: 20121002
  8. REBETOL [Suspect]
     Dosage: 400 MG, QD
     Route: 048
     Dates: start: 20121003, end: 20121016
  9. REBETOL [Suspect]
     Dosage: 600 MG, QD
     Route: 048
     Dates: start: 20121017, end: 20121120
  10. REBETOL [Suspect]
     Dosage: 200 MG, QD
     Route: 048
     Dates: start: 20121121, end: 20121127
  11. FEBURIC [Suspect]
     Indication: PROPHYLAXIS
     Dosage: 20 MG, QD
     Route: 048
     Dates: start: 20120905, end: 20121031
  12. FEBURIC [Suspect]
     Dosage: 30 MG, QD
     Route: 048
     Dates: start: 20121101, end: 20121209
  13. FEBURIC [Suspect]
     Dosage: 20 MG, QD
     Route: 048
     Dates: start: 20121210, end: 20121212
  14. NORVASC [Concomitant]
     Dosage: 2.5 MG, QD
     Route: 048
  15. LENDORMIN DAINIPPO [Concomitant]
     Dosage: 0.25 MG, QD
     Route: 048
  16. VOLTAREN [Concomitant]
     Dosage: 37.5 MG, QD PRN
     Route: 048
     Dates: start: 20120905
  17. VOLTAREN [Concomitant]
     Dosage: 37.5 MG, QD
     Route: 048
     Dates: end: 20121204
  18. LENDORMIN [Concomitant]
     Dosage: 0.25 MG, QD
     Route: 048
  19. TAKEPRON [Concomitant]
     Dosage: 30 MG, QD
     Route: 048
     Dates: start: 20121205, end: 20130129
  20. ZOSYN [Concomitant]
     Dosage: 13.5 G, QD
     Route: 042
     Dates: start: 20121212, end: 20121220
  21. ACTONEL [Concomitant]
     Dosage: 17.5 MG, QD
     Route: 048
     Dates: start: 20130114, end: 20130121
  22. GASTER [Concomitant]
     Dosage: 20 MG, QD
     Route: 048
     Dates: start: 20130118, end: 20130213
  23. NEXIUM [Concomitant]
     Dosage: 20 MG, QD
     Route: 048
     Dates: start: 20130130, end: 20130206
  24. PARIET [Concomitant]
     Dosage: 10 MG, QD
     Route: 048
     Dates: start: 20130207

REACTIONS (4)
  - Pyrexia [Recovered/Resolved]
  - Malaise [Recovered/Resolved]
  - Drug reaction with eosinophilia and systemic symptoms [Recovered/Resolved]
  - Haemoglobin decreased [Recovered/Resolved]
